FAERS Safety Report 8641582 (Version 2)
Quarter: 2014Q1

REPORT INFORMATION
  Report Type: Spontaneous
  Country: US (occurrence: None)
  Receive Date: 20120323
  Receipt Date: 20130305
  Transmission Date: 20141002
  Serious: Yes (Hospitalization, Other)
  Sender: FDA-Public Use
  Company Number: 163-21880-11093028

PATIENT
  Age: 63 Year
  Sex: Male
  Weight: 90.27 kg

DRUGS (23)
  1. REVLIMID [Suspect]
     Indication: PLASMA CELL MYELOMA
     Dosage: 25 MG, ONCE DAILY X 3 WEEKS ON, 1 WEEK OFF, PO
     Route: 048
     Dates: start: 20110118, end: 201112
  2. ASPIRIN [Concomitant]
  3. BENADRYL (CLONALIN) [Concomitant]
  4. CIPRO [Concomitant]
  5. COLACE (DOCUSATE SODIUM) [Concomitant]
  6. COREG (CARVEDILOL) [Concomitant]
  7. DECADRON [Concomitant]
  8. EFFEXOR XR (VENALFAXINE HYDRICHLORIDE) [Concomitant]
  9. ENALAPRIL [Concomitant]
  10. PEPCID (FAMOTIDINE) [Concomitant]
  11. PLAVIX (CLOPIDOGREL SULFATE) [Concomitant]
  12. PROCHLORPERAZINE (PROCHLORPERAZINE) [Concomitant]
  13. PROSCAR (FINASTERIDE) [Concomitant]
  14. TRAZODONE [Concomitant]
  15. VALIUM (DIAZEPAM) [Concomitant]
  16. ZOCOR [Concomitant]
  17. ZOLPIDEM [Concomitant]
  18. FLOMAX (TAMSULOSIN HYDROCHLORIDE) [Concomitant]
  19. LASIX (FUROSEMIDE) [Concomitant]
  20. LOPID (GEMFIBROZIL) [Concomitant]
  21. MIRALAX (MACROGOL) [Concomitant]
  22. MORPHINE [Concomitant]
  23. MV [Concomitant]

REACTIONS (2)
  - Deep vein thrombosis [None]
  - Thrombosis [None]
